FAERS Safety Report 9860031 (Version 2)
Quarter: 2014Q1

REPORT INFORMATION
  Report Type: Spontaneous
  Country: DE (occurrence: DE)
  Receive Date: 20140131
  Receipt Date: 20140215
  Transmission Date: 20141002
  Serious: Yes (Hospitalization)
  Sender: FDA-Public Use
  Company Number: DE-ASTRAZENECA-2014SE05933

PATIENT
  Age: 75 Year
  Sex: Female

DRUGS (5)
  1. NEXIUM [Suspect]
     Indication: HAEMORRHAGE PROPHYLAXIS
     Route: 050
     Dates: start: 2013
  2. EUTHYROX [Concomitant]
     Route: 048
  3. LEVOBENS [Concomitant]
     Route: 048
  4. LACTULOSE [Concomitant]
  5. CHINESE TEA [Concomitant]
     Indication: LAXATIVE SUPPORTIVE CARE

REACTIONS (10)
  - Upper gastrointestinal haemorrhage [Unknown]
  - Gastrooesophageal reflux disease [Unknown]
  - Haemorrhagic erosive gastritis [Unknown]
  - Haematemesis [Unknown]
  - Hiatus hernia [Unknown]
  - Pneumonia aspiration [Unknown]
  - Haemoglobin decreased [Unknown]
  - Poor peripheral circulation [Unknown]
  - Faecaloma [Unknown]
  - Drug ineffective [Unknown]
